FAERS Safety Report 8358119-9 (Version None)
Quarter: 2012Q2

REPORT INFORMATION
  Report Type: 
  Country: None (occurrence: None)
  Receive Date: 20120514
  Receipt Date: 20120504
  Transmission Date: 20120825
  Serious: Yes (Hospitalization)
  Sender: FDA-Public Use
  Company Number: US-GLAXOSMITHKLINE-A0861359A

PATIENT
  Age: 48 Year
  Sex: Male
  Weight: 127.3 kg

DRUGS (7)
  1. LIPITOR [Concomitant]
  2. TOPROL-XL [Concomitant]
  3. GLYBURIDE [Concomitant]
  4. AVANDIA [Suspect]
     Indication: TYPE 2 DIABETES MELLITUS
     Dosage: 4MG PER DAY
     Route: 048
     Dates: start: 20000101, end: 20070501
  5. METFORMIN HCL [Concomitant]
  6. DIABETA [Concomitant]
  7. ENALAPRIL MALEATE [Concomitant]

REACTIONS (2)
  - MYOCARDIAL INFARCTION [None]
  - CORONARY ARTERY DISEASE [None]
